FAERS Safety Report 8761627 (Version 1)
Quarter: 2012Q4

REPORT INFORMATION
  Report Type: 
  Country: FR (occurrence: FR)
  Receive Date: 20120828
  Receipt Date: 20120828
  Transmission Date: 20130627
  Serious: Yes (Hospitalization)
  Sender: FDA-Public Use
  Company Number: FR-UCBSA-064218

PATIENT
  Age: 40 Year
  Sex: Female

DRUGS (6)
  1. KEPPRA [Suspect]
     Indication: EPILEPSY
     Route: 048
     Dates: start: 20120529, end: 20120531
  2. KEPPRA [Suspect]
     Indication: EPILEPSY
     Dosage: DAILY DOSE: 1500 MG
     Route: 048
     Dates: start: 20120601, end: 2012
  3. RIVOTRIL [Suspect]
     Indication: EPILEPSY
     Dosage: AMPOULES
     Dates: start: 20120531
  4. RIVOTRIL [Suspect]
     Indication: EPILEPSY
     Dosage: 1 MG/ML SYRINGE PUMP
     Route: 042
     Dates: start: 20120529, end: 201205
  5. URBANYL [Concomitant]
     Indication: EPILEPSY
  6. LAMICTAL [Concomitant]
     Indication: EPILEPSY

REACTIONS (2)
  - Psychiatric decompensation [Unknown]
  - Exposure during pregnancy [Recovered/Resolved]
